FAERS Safety Report 8321153 (Version 2)
Quarter: 2014Q4

REPORT INFORMATION
  Report Type: Spontaneous
  Country: US (occurrence: US)
  Receive Date: 20100113
  Receipt Date: 20141107
  Transmission Date: 20150529
  Serious: Yes (Death)
  Sender: FDA-Public Use
  Company Number: US-BAYER-201011018GPV

PATIENT
  Age: 35 Year
  Sex: Male

DRUGS (2)
  1. PARACETAMOL + DIPHENHYDRAMINE [Suspect]
     Active Substance: ACETAMINOPHEN\DIPHENHYDRAMINE
     Indication: COMPLETED SUICIDE
  2. ETHANOL [Suspect]
     Active Substance: ALCOHOL
     Indication: COMPLETED SUICIDE

REACTIONS (1)
  - Toxicity to various agents [Fatal]
